FAERS Safety Report 8067823-1 (Version None)
Quarter: 2012Q1

REPORT INFORMATION
  Report Type: 
  Country: None (occurrence: None)
  Receive Date: 20120124
  Receipt Date: 20120117
  Transmission Date: 20120608
  Serious: Yes (Hospitalization)
  Sender: FDA-Public Use
  Company Number: BR-ASTRAZENECA-2012SE03813

PATIENT
  Age: 52 Year
  Sex: Male
  Weight: 92 kg

DRUGS (3)
  1. NEXIUM [Concomitant]
     Indication: GASTRITIS
     Route: 048
     Dates: start: 20110101, end: 20110101
  2. CRESTOR [Suspect]
     Route: 048
     Dates: start: 20110101
  3. CRESTOR [Suspect]
     Indication: BLOOD CHOLESTEROL INCREASED
     Route: 048

REACTIONS (1)
  - ARTERIAL OCCLUSIVE DISEASE [None]
